FAERS Safety Report 8421864-0 (Version None)
Quarter: 2012Q2

REPORT INFORMATION
  Report Type: 
  Country: None (occurrence: None)
  Receive Date: 20120608
  Receipt Date: 20120604
  Transmission Date: 20120825
  Serious: Yes (Other)
  Sender: FDA-Public Use
  Company Number: RU-PFIZER INC-2012118477

PATIENT
  Age: 45 Year
  Sex: Female

DRUGS (3)
  1. ZOLOFT [Suspect]
     Indication: DEPRESSION
     Dosage: BETWEEN 12,5 AND 25 MG (DEPENDING ON CONDITION) EVERY OTHER DAY, SIX MONTHS CYCLE
     Route: 048
     Dates: start: 20100101
  2. VALERIANA [Concomitant]
     Dosage: 2 TABLETS PER NIGHT, AS NEEDED
     Route: 048
  3. SERTRALINE HYDROCHLORIDE [Suspect]
     Indication: DEPRESSION
     Dosage: 25 MG, EVERY OTHER DAY, SIX MONTHS CYCLE
     Route: 048
     Dates: start: 20100101

REACTIONS (5)
  - HAEMOGLOBIN DECREASED [None]
  - HEPATIC FUNCTION ABNORMAL [None]
  - GASTRITIS [None]
  - SKIN HAEMORRHAGE [None]
  - THROMBOCYTOPENIA [None]
